FAERS Safety Report 13332037 (Version 1)
Quarter: 2017Q1

REPORT INFORMATION
  Report Type: Spontaneous
  Country: US (occurrence: US)
  Receive Date: 20170313
  Receipt Date: 20170313
  Transmission Date: 20170428
  Serious: No
  Sender: FDA-Public Use
  Company Number: US-PFIZER INC-2017106814

PATIENT
  Age: 91 Year
  Sex: Female
  Weight: 79 kg

DRUGS (1)
  1. AROMASIN [Suspect]
     Active Substance: EXEMESTANE
     Indication: BREAST CANCER
     Dosage: 25 MG, 1XDAY (AFTER A MEAL)
     Route: 048
     Dates: start: 2015, end: 20170228

REACTIONS (1)
  - Hot flush [Not Recovered/Not Resolved]
